FAERS Safety Report 5574719-3 (Version None)
Quarter: 2007Q4

REPORT INFORMATION
  Report Type: 
  Country: None (occurrence: None)
  Receive Date: 20071221
  Receipt Date: 20071221
  Transmission Date: 20080405
  Serious: Yes (Life-Threatening)
  Sender: FDA-Public Use
  Company Number: None

PATIENT
  Age: 47 Year
  Sex: Female
  Weight: 77.1115 kg

DRUGS (1)
  1. MIRENA [Suspect]
     Indication: CHEMICAL CONTRACEPTION
     Dates: start: 20040202, end: 20070103

REACTIONS (7)
  - ABDOMINAL DISTENSION [None]
  - CONJUNCTIVITIS [None]
  - DRUG HYPERSENSITIVITY [None]
  - FATIGUE [None]
  - IUCD COMPLICATION [None]
  - MUSCLE SPASMS [None]
  - TIC [None]
